FAERS Safety Report 20478836 (Version 3)
Quarter: 2022Q3

REPORT INFORMATION
  Report Type: Spontaneous
  Country: FR (occurrence: FR)
  Receive Date: 20220216
  Receipt Date: 20220705
  Transmission Date: 20221027
  Serious: Yes (Other)
  Sender: FDA-Public Use
  Company Number: FR-NOVARTISPH-NVSC2022FR026957

PATIENT
  Age: 37 Year
  Sex: Male
  Weight: 77 kg

DRUGS (3)
  1. COSENTYX [Suspect]
     Active Substance: SECUKINUMAB
     Indication: Psoriasis
     Dosage: 150 MG, QMO
     Route: 065
     Dates: start: 201609
  2. COSENTYX [Suspect]
     Active Substance: SECUKINUMAB
     Indication: Polyarthritis
     Dosage: UNK
     Route: 065
     Dates: start: 2017
  3. COSENTYX [Suspect]
     Active Substance: SECUKINUMAB
     Dosage: 300 MG (300/2 MG/ML)
     Route: 065

REACTIONS (12)
  - Peritonsillar abscess [Not Recovered/Not Resolved]
  - Gastrointestinal disorder [Not Recovered/Not Resolved]
  - Fatigue [Not Recovered/Not Resolved]
  - General physical health deterioration [Unknown]
  - Device leakage [Unknown]
  - Accidental exposure to product [Unknown]
  - Psoriasis [Unknown]
  - Pruritus [Not Recovered/Not Resolved]
  - Product quality issue [Recovered/Resolved]
  - Product use issue [Unknown]
  - Product use in unapproved indication [Unknown]
  - Incorrect dose administered [Recovered/Resolved]

NARRATIVE: CASE EVENT DATE: 20170101
